FAERS Safety Report 13481048 (Version 1)
Quarter: 2017Q2

REPORT INFORMATION
  Report Type: Spontaneous
  Country: FR (occurrence: FR)
  Receive Date: 20170425
  Receipt Date: 20170425
  Transmission Date: 20170830
  Serious: Yes (Other)
  Sender: FDA-Public Use
  Company Number: FR-MERCK KGAA-1065866

PATIENT
  Sex: Female
  Weight: 50 kg

DRUGS (2)
  1. NOVOTHYROX [Suspect]
     Active Substance: LEVOTHYROXINE SODIUM
     Route: 065
  2. NOVOTHYROX [Suspect]
     Active Substance: LEVOTHYROXINE SODIUM
     Indication: POST PROCEDURAL HYPOTHYROIDISM
     Route: 065

REACTIONS (11)
  - Anxiety [Unknown]
  - Pain [Unknown]
  - Dyspepsia [Unknown]
  - Insomnia [Unknown]
  - Overdose [Unknown]
  - Haemorrhage in pregnancy [Unknown]
  - Gastrointestinal pain [Unknown]
  - Maternal exposure during pregnancy [Unknown]
  - Apathy [Unknown]
  - Diarrhoea [Unknown]
  - Headache [Unknown]
